FAERS Safety Report 7349799-5 (Version None)
Quarter: 2011Q1

REPORT INFORMATION
  Report Type: 
  Country: None (occurrence: None)
  Receive Date: 20110222
  Receipt Date: 20100423
  Transmission Date: 20110831
  Serious: Yes (Hospitalization, Other)
  Sender: FDA-Public Use
  Company Number: 2010BH006234

PATIENT
  Age: 66 Year
  Sex: Male

DRUGS (1)
  1. ARALAST NP [Suspect]
     Indication: PRODUCT USED FOR UNKNOWN INDICATION
     Dosage: 60 MG/KG; EVERY WEEK; IV
     Route: 042
     Dates: start: 20091127

REACTIONS (2)
  - DYSPNOEA [None]
  - DIZZINESS [None]
